FAERS Safety Report 7141174-1 (Version None)
Quarter: 2010Q4

REPORT INFORMATION
  Report Type: 
  Country: None (occurrence: None)
  Receive Date: 20101202
  Receipt Date: 20101202
  Transmission Date: 20110411
  Serious: No
  Sender: FDA-Public Use
  Company Number: None

PATIENT
  Sex: Male
  Weight: 86.1834 kg

DRUGS (1)
  1. OXYCONTIN [Suspect]
     Indication: FRACTURE
     Dosage: 40 MG 4 X DAILY (PO)
     Route: 048

REACTIONS (3)
  - ABDOMINAL DISCOMFORT [None]
  - CHEST PAIN [None]
  - VOMITING [None]
